FAERS Safety Report 7395011-0 (Version None)
Quarter: 2011Q2

REPORT INFORMATION
  Report Type: 
  Country: None (occurrence: None)
  Receive Date: 20110405
  Receipt Date: 20110323
  Transmission Date: 20111010
  Serious: Yes (Hospitalization)
  Sender: FDA-Public Use
  Company Number: US-ACTELION-A-US2011-46205

PATIENT

DRUGS (3)
  1. TRACLEER [Suspect]
     Indication: PULMONARY ARTERIAL HYPERTENSION
     Dosage: UNK
     Route: 048
     Dates: start: 20070511
  2. COUMADIN [Concomitant]
  3. REVATIO [Concomitant]

REACTIONS (3)
  - DEHYDRATION [None]
  - PNEUMONIA [None]
  - BLOOD POTASSIUM DECREASED [None]
